FAERS Safety Report 5220913-0 (Version None)
Quarter: 2007Q1

REPORT INFORMATION
  Report Type: 
  Country: None (occurrence: None)
  Receive Date: 20070125
  Receipt Date: 20070125
  Transmission Date: 20070707
  Serious: Yes (Hospitalization)
  Sender: FDA-Public Use
  Company Number: None

PATIENT
  Sex: Female
  Weight: 56.6996 kg

DRUGS (8)
  1. DIGOXIN [Suspect]
     Indication: ATRIAL FIBRILLATION
     Dosage: 0.125 MG PO QD PRIOR TO ADMISSION
  2. AMARYL [Concomitant]
  3. LISINOPRIL [Concomitant]
  4. ZAROXOLYN [Concomitant]
  5. ZOCOR [Concomitant]
  6. PREDNISONE [Concomitant]
  7. COREG [Concomitant]
  8. COUMADIN [Concomitant]

REACTIONS (5)
  - ASTHENIA [None]
  - CARDIAC FAILURE CONGESTIVE [None]
  - CARDIOACTIVE DRUG LEVEL INCREASED [None]
  - COUGH [None]
  - VOMITING [None]
